FAERS Safety Report 21273135 (Version 1)
Quarter: 2022Q3

REPORT INFORMATION
  Report Type: Spontaneous
  Country: US (occurrence: US)
  Receive Date: 20220831
  Receipt Date: 20220831
  Transmission Date: 20221027
  Serious: No
  Sender: FDA-Public Use
  Company Number: US-ALLERGAN-2219846US

PATIENT
  Sex: Female

DRUGS (1)
  1. CARAFATE [Suspect]
     Active Substance: SUCRALFATE
     Indication: Product used for unknown indication

REACTIONS (3)
  - Tongue discomfort [Unknown]
  - Dysphagia [Unknown]
  - Product solubility abnormal [Unknown]
